FAERS Safety Report 5890706-X (Version None)
Quarter: 2008Q3

REPORT INFORMATION
  Report Type: 
  Country: None (occurrence: None)
  Receive Date: 20080922
  Receipt Date: 20080915
  Transmission Date: 20090109
  Serious: Yes (Death, Other)
  Sender: FDA-Public Use
  Company Number: IE-AVENTIS-200814916EU

PATIENT
  Age: 86 Year
  Sex: Male

DRUGS (2)
  1. CLEXANE [Suspect]
     Route: 058
     Dates: start: 20080117
  2. ZYVOX [Suspect]
     Indication: SEPSIS
     Route: 042
     Dates: start: 20080509, end: 20080516

REACTIONS (2)
  - DEATH [None]
  - THROMBOCYTOPENIA [None]
